FAERS Safety Report 10911936 (Version 1)
Quarter: 2015Q1

REPORT INFORMATION
  Report Type: Spontaneous
  Country: US (occurrence: US)
  Receive Date: 20150313
  Receipt Date: 20150313
  Transmission Date: 20150721
  Serious: No
  Sender: FDA-Public Use
  Company Number: US-009507513-1502USA006930

PATIENT
  Age: 37 Year
  Sex: Female
  Weight: 77.98 kg

DRUGS (1)
  1. NUVARING [Suspect]
     Active Substance: ETHINYL ESTRADIOL\ETONOGESTREL
     Indication: CONTRACEPTION
     Dosage: DOSE/FREQUENCY: CONTINOUSLY
     Route: 067
     Dates: start: 2012

REACTIONS (5)
  - Incorrect drug administration duration [Unknown]
  - Headache [Unknown]
  - Paraesthesia [Unknown]
  - Palpitations [Unknown]
  - Drug prescribing error [Unknown]
